FAERS Safety Report 8151451-3 (Version None)
Quarter: 2012Q1

REPORT INFORMATION
  Report Type: 
  Country: None (occurrence: None)
  Receive Date: 20120220
  Receipt Date: 20120208
  Transmission Date: 20120608
  Serious: Yes (Hospitalization)
  Sender: FDA-Public Use
  Company Number: US-ROCHE-1038294

PATIENT
  Sex: Female
  Weight: 135.8 kg

DRUGS (7)
  1. LIPITOR [Concomitant]
     Dosage: EVERY NIGHT
     Route: 048
  2. NORCO [Concomitant]
     Indication: PAIN
     Dosage: EVERY 4 HOURS AS REQUIRED.
     Route: 048
  3. RANIBIZUMAB [Suspect]
     Indication: PRODUCT USED FOR UNKNOWN INDICATION
     Route: 050
     Dates: start: 20110330
  4. COLACE [Concomitant]
     Indication: CONSTIPATION
     Route: 048
  5. ACTOS [Concomitant]
     Route: 048
  6. LANTUS [Concomitant]
     Dosage: 20 UNITS.
     Route: 058
  7. BACTRIM DS [Concomitant]
     Route: 048

REACTIONS (4)
  - NEPHROLITHIASIS [None]
  - ANAEMIA [None]
  - ESCHERICHIA URINARY TRACT INFECTION [None]
  - ESCHERICHIA BACTERAEMIA [None]
